FAERS Safety Report 4688047-1 (Version None)
Quarter: 2005Q2

REPORT INFORMATION
  Report Type: 
  Country: None (occurrence: None)
  Receive Date: 20050609
  Receipt Date: 20050527
  Transmission Date: 20051028
  Serious: Yes (Hospitalization)
  Sender: FDA-Public Use
  Company Number: 2005058423

PATIENT
  Sex: Female

DRUGS (1)
  1. BEXTRA [Suspect]

REACTIONS (1)
  - NO ADVERSE DRUG EFFECT [None]
